FAERS Safety Report 12769608 (Version 2)
Quarter: 2016Q4

REPORT INFORMATION
  Report Type: Spontaneous
  Country: JP (occurrence: JP)
  Receive Date: 20160922
  Receipt Date: 20161103
  Transmission Date: 20170207
  Serious: Yes (Other)
  Sender: FDA-Public Use
  Company Number: JP-ROCHE-1833217

PATIENT
  Age: 45 Year
  Sex: Female

DRUGS (8)
  1. HALIZON [Concomitant]
     Active Substance: AMPHOTERICIN B
     Route: 048
     Dates: start: 20160810, end: 20160911
  2. RITUXAN [Suspect]
     Active Substance: RITUXIMAB
     Indication: DERMATOMYOSITIS
     Route: 042
     Dates: start: 20160908
  3. MAGNESIUM OXIDE. [Concomitant]
     Active Substance: MAGNESIUM OXIDE
     Route: 048
     Dates: start: 20160810, end: 20160911
  4. ARCRANE [Concomitant]
     Route: 048
     Dates: start: 20160811, end: 20160911
  5. RITUXAN [Suspect]
     Active Substance: RITUXIMAB
     Route: 042
     Dates: start: 20160917
  6. RINDERON V [Concomitant]
     Active Substance: BETAMETHASONE VALERATE
     Indication: DERMATOMYOSITIS
     Route: 042
     Dates: start: 20160803, end: 20160923
  7. SANDIMMUN [Concomitant]
     Active Substance: CYCLOSPORINE
     Indication: DERMATOMYOSITIS
     Route: 042
     Dates: start: 20160826, end: 20160922
  8. TAKECAB [Concomitant]
     Active Substance: VONOPRAZAN FUMURATE
     Route: 048
     Dates: start: 20160903, end: 20160911

REACTIONS (2)
  - Cerebral infarction [Recovering/Resolving]
  - Cerebral artery occlusion [Recovering/Resolving]

NARRATIVE: CASE EVENT DATE: 20160911
